FAERS Safety Report 18493986 (Version 1)
Quarter: 2020Q4

REPORT INFORMATION
  Report Type: Spontaneous
  Country: US (occurrence: US)
  Receive Date: 20201111
  Receipt Date: 20201111
  Transmission Date: 20210114
  Serious: No
  Sender: FDA-Public Use
  Company Number: US-TAKEDA-2020TUS048974

PATIENT
  Age: 51 Year
  Sex: Female

DRUGS (5)
  1. TRINTELLIX [Suspect]
     Active Substance: VORTIOXETINE HYDROBROMIDE
     Indication: DEPRESSION
     Dosage: 5 MILLIGRAM
     Route: 065
  2. TRINTELLIX [Suspect]
     Active Substance: VORTIOXETINE HYDROBROMIDE
     Dosage: 20 MILLIGRAM
     Route: 065
  3. TRINTELLIX [Suspect]
     Active Substance: VORTIOXETINE HYDROBROMIDE
     Dosage: 10 MILLIGRAM
     Route: 065
  4. TRINTELLIX [Suspect]
     Active Substance: VORTIOXETINE HYDROBROMIDE
     Dosage: 5 MILLIGRAM
     Route: 065
  5. TRINTELLIX [Suspect]
     Active Substance: VORTIOXETINE HYDROBROMIDE
     Dosage: 10 MILLIGRAM
     Route: 065

REACTIONS (1)
  - Arthralgia [Recovered/Resolved]
